FAERS Safety Report 18198201 (Version 1)
Quarter: 2020Q3

REPORT INFORMATION
  Report Type: Report from Study
  Country: IT (occurrence: IT)
  Receive Date: 20200826
  Receipt Date: 20200826
  Transmission Date: 20201103
  Serious: Yes (Death)
  Sender: FDA-Public Use
  Company Number: IT-MYLANLABS-2020M1074128

PATIENT
  Sex: Male

DRUGS (12)
  1. ETOPOSIDE. [Suspect]
     Active Substance: ETOPOSIDE
     Indication: GERM CELL NEOPLASM
     Dosage: 100 MILLIGRAM/SQ. METER, CYCLEADMINISTERED OVER 60..
     Route: 042
  2. DEXAMETHASONE. [Concomitant]
     Active Substance: DEXAMETHASONE
     Indication: PREMEDICATION
     Dosage: 8 MILLIGRAMADMINISTERED OVER...
     Route: 042
  3. SALINE                             /00075401/ [Concomitant]
     Active Substance: SODIUM CHLORIDE
     Indication: VEHICLE SOLUTION USE
     Dosage: 500 MILLILITERADMINISTERED OVER 24 HOURS...
     Route: 042
  4. BLEOMYCIN [Suspect]
     Active Substance: BLEOMYCIN SULFATE
     Indication: GERM CELL NEOPLASM
     Dosage: 15 MILLIGRAM, CYCLEIV PUSH ON DAY 1, AS..
     Route: 042
  5. RANITIDINE. [Concomitant]
     Active Substance: RANITIDINE
     Indication: PREMEDICATION
     Dosage: 100 MILLIGRAMADMINISTERED OVER 30 MINUTES..
     Route: 042
  6. FOSAPREPITANT [Concomitant]
     Active Substance: FOSAPREPITANT
     Indication: PREMEDICATION
     Dosage: 150 MILLIGRAMADMINISTERED OVER 30 MINUTES..
     Route: 042
  7. GRANISETRON [Concomitant]
     Active Substance: GRANISETRON
     Indication: PREMEDICATION
     Dosage: 3 MILLIGRAM ADMINISTERED OVER 30...
     Route: 042
  8. DEXAMETHASONE. [Concomitant]
     Active Substance: DEXAMETHASONE
     Dosage: 4 MILLIGRAMADMINISTERED OVER 15 MINUTES ...
     Route: 042
  9. POTASSIUM CHLORIDE. [Concomitant]
     Active Substance: POTASSIUM CHLORIDE
     Indication: FLUID REPLACEMENT
     Dosage: 20 MILLIEQUIVALENTDISSOLVED IN SODIUM CHLORIDE...
     Route: 042
  10. MAGNESIUM SULFATE. [Concomitant]
     Active Substance: MAGNESIUM SULFATE
     Indication: FLUID REPLACEMENT
     Dosage: 20 MILLIEQUIVALENTDISSOLVED IN SODIUM CHLORIDE...
     Route: 042
  11. CISPLATIN. [Suspect]
     Active Substance: CISPLATIN
     Indication: GERM CELL NEOPLASM
     Dosage: 20 MILLIGRAM/SQ. METER, CYCLEADMINISTERED OVER 3 HOURS..
     Route: 042
  12. BLEOMYCIN [Suspect]
     Active Substance: BLEOMYCIN SULFATE
     Dosage: 10 MILLIGRAM, CYCLE 10 MILLIGRAM CONTINUOUS INFUSION ADMINISTERED ..
     Route: 042

REACTIONS (1)
  - Cerebrovascular accident [Fatal]
